FAERS Safety Report 13763150 (Version 1)
Quarter: 2017Q3

REPORT INFORMATION
  Report Type: Spontaneous
  Country: US (occurrence: US)
  Receive Date: 20170718
  Receipt Date: 20170718
  Transmission Date: 20171127
  Serious: Yes (Other)
  Sender: FDA-Public Use
  Company Number: US-BAYER-2017-133342

PATIENT
  Age: 1 Year
  Sex: Male

DRUGS (2)
  1. CLARITIN [Suspect]
     Active Substance: LORATADINE
     Indication: NASOPHARYNGITIS
     Dosage: 1/2 TSP IN MORNING
     Route: 048
     Dates: start: 20170711, end: 20170711
  2. CLARITIN [Suspect]
     Active Substance: LORATADINE
     Indication: HYPERSENSITIVITY
     Dosage: 1/2 TSP LAST AT NIGHT AT 10 PM
     Route: 048
     Dates: start: 20170710, end: 20170710

REACTIONS (6)
  - Inappropriate schedule of drug administration [Unknown]
  - Head injury [Not Recovered/Not Resolved]
  - Fall [None]
  - Feeling abnormal [None]
  - Somnolence [None]
  - Intentional product misuse [Unknown]

NARRATIVE: CASE EVENT DATE: 20170710
